FAERS Safety Report 9380050 (Version 2)
Quarter: 2014Q1

REPORT INFORMATION
  Report Type: Spontaneous
  Country: US (occurrence: US)
  Receive Date: 20130702
  Receipt Date: 20140128
  Transmission Date: 20141002
  Serious: No
  Sender: FDA-Public Use
  Company Number: US-PFIZER INC-2013195640

PATIENT
  Age: 47 Year
  Sex: Male
  Weight: 120.18 kg

DRUGS (7)
  1. ENBREL [Suspect]
     Dosage: UNK
     Route: 065
  2. XELJANZ [Suspect]
     Dosage: UNKNOWN
  3. METHOTREXATE SODIUM [Suspect]
     Dosage: UNK
  4. DOXYCYCLINE CALCIUM [Suspect]
     Dosage: UNK
  5. ALBUTEROL [Suspect]
     Dosage: UNK
  6. LEFLUNOMIDE [Concomitant]
     Dosage: 10 MG, UNK
  7. PREDNISONE [Concomitant]
     Dosage: 1 MG, UNK

REACTIONS (2)
  - Drug hypersensitivity [Unknown]
  - Food allergy [Unknown]
